FAERS Safety Report 5427614-4 (Version None)
Quarter: 2007Q3

REPORT INFORMATION
  Report Type: 
  Country: None (occurrence: None)
  Receive Date: 20070823
  Receipt Date: 20060911
  Transmission Date: 20080115
  Serious: Yes (Hospitalization)
  Sender: FDA-Public Use
  Company Number: 6034678

PATIENT
  Age: 6 Month
  Sex: Female

DRUGS (9)
  1. ACYCLOVIR [Suspect]
     Indication: ANTIVIRAL PROPHYLAXIS
     Dosage: (250 MG/M2,1-3X/DAY), INTRAVENOUS (NOT OTHERWISE SPECIFIED)
     Route: 042
  2. ANTI-T-LYMPHOCYTE-GLOBULIN (ANTILYMPHOCYTE IMMUNOGLOBULIN) [Concomitant]
  3. CYCLOSPORINE [Concomitant]
  4. AZATHIOPRINE [Concomitant]
  5. CORTICOSTEROIDS [Concomitant]
  6. TICARCILLIN-CLAVULANIC ACID(TICARCILLIN, CLAVULANIC ACID) [Concomitant]
  7. FLUCONAZOLE [Concomitant]
  8. FENTANYL [Concomitant]
  9. MIDAZOLAM HCL [Concomitant]

REACTIONS (4)
  - COMA [None]
  - DRUG LEVEL ABOVE THERAPEUTIC [None]
  - ENCEPHALOPATHY [None]
  - NEUROTOXICITY [None]
